FAERS Safety Report 12758834 (Version 23)
Quarter: 2020Q1

REPORT INFORMATION
  Report Type: Spontaneous
  Country: FI (occurrence: FI)
  Receive Date: 20160919
  Receipt Date: 20200330
  Transmission Date: 20200409
  Serious: Yes (Death, Life-Threatening, Hospitalization, Other)
  Sender: FDA-Public Use
  Company Number: FI-SA-2014SA128650

PATIENT
  Age: 26 Year
  Sex: Female
  Weight: 89 kg

DRUGS (12)
  1. RANITIDINE. [Concomitant]
     Active Substance: RANITIDINE
     Dosage: 300 MG,QD
  2. HISTEC [Concomitant]
     Active Substance: CETIRIZINE HYDROCHLORIDE
     Dosage: 10 MG,QD
  3. ACICLOVIR [Concomitant]
     Active Substance: ACYCLOVIR
     Dosage: 200 MG,BID
  4. PARACETAMOL [Concomitant]
     Active Substance: ACETAMINOPHEN
     Dosage: 1 G,TID
  5. PIPERACILLIN/TAZOBACTAM [Concomitant]
     Active Substance: PIPERACILLIN SODIUM\TAZOBACTAM SODIUM
     Dosage: UNK
     Dates: start: 201609
  6. LEMTRADA [Suspect]
     Active Substance: ALEMTUZUMAB
     Indication: RELAPSING-REMITTING MULTIPLE SCLEROSIS
     Dosage: 12 MG,QD
     Route: 041
     Dates: start: 20140915, end: 20140919
  7. METHYLPREDNISOLONE. [Concomitant]
     Active Substance: METHYLPREDNISOLONE
     Dosage: 500 MG,QD
     Dates: start: 20140918, end: 20140919
  8. SOMAC [Concomitant]
     Active Substance: PANTOPRAZOLE SODIUM
     Dosage: 40 MG,QD
  9. LEMTRADA [Suspect]
     Active Substance: ALEMTUZUMAB
     Dosage: UNK UNK,UNK
     Route: 041
     Dates: start: 201509, end: 201509
  10. METHYLPREDNISOLONE. [Concomitant]
     Active Substance: METHYLPREDNISOLONE
     Dosage: 1000 MG,QD
  11. NUVARING [Concomitant]
     Active Substance: ETHINYL ESTRADIOL\ETONOGESTREL
     Dosage: UNK
  12. ETHINYLESTRADIOL [Concomitant]
     Active Substance: ETHINYL ESTRADIOL
     Dosage: UNK

REACTIONS (45)
  - Coma hepatic [Fatal]
  - Abdominal pain upper [Recovered/Resolved]
  - Nephropathy [Unknown]
  - Hepatic encephalopathy [Fatal]
  - Thrombocytopenia [Fatal]
  - Serum ferritin increased [Fatal]
  - Interleukin-2 receptor increased [Fatal]
  - Cholecystitis [Recovered/Resolved]
  - Pulmonary congestion [Unknown]
  - Autoimmune hepatitis [Unknown]
  - Hepatic enzyme increased [Fatal]
  - Hyperaemia [Fatal]
  - Haemophagocytic lymphohistiocytosis [Fatal]
  - Pleural effusion [Unknown]
  - Therapeutic response unexpected [Unknown]
  - Hepatic failure [Fatal]
  - Loss of consciousness [Fatal]
  - Coagulopathy [Fatal]
  - C-reactive protein increased [Recovering/Resolving]
  - Ascites [Unknown]
  - Heart rate decreased [Recovered/Resolved]
  - Biliary tract disorder [Fatal]
  - Haemophagocytic lymphohistiocytosis [Fatal]
  - Cytokine storm [Fatal]
  - Adrenal neoplasm [Not Recovered/Not Resolved]
  - Intra-abdominal fluid collection [Unknown]
  - Cerebral haemorrhage [Unknown]
  - Tachycardia [Unknown]
  - Food allergy [Unknown]
  - Vomiting [Unknown]
  - Rash [Recovered/Resolved]
  - Hepatic necrosis [Fatal]
  - Brain herniation [Unknown]
  - Constipation [Recovered/Resolved]
  - Gastrointestinal haemorrhage [Unknown]
  - Lymphocyte count increased [Fatal]
  - Abdominal pain upper [Fatal]
  - Leukocytosis [Unknown]
  - Brain oedema [Unknown]
  - Rash pruritic [Recovered/Resolved]
  - Anaemia [Fatal]
  - Pyrexia [Fatal]
  - Dyspnoea [Recovered/Resolved]
  - Blood immunoglobulin E decreased [Unknown]
  - Nausea [Unknown]

NARRATIVE: CASE EVENT DATE: 201409
